FAERS Safety Report 5086907-3 (Version None)
Quarter: 2006Q3

REPORT INFORMATION
  Report Type: 
  Country: None (occurrence: None)
  Receive Date: 20060821
  Receipt Date: 20060804
  Transmission Date: 20061208
  Serious: Yes (Other)
  Sender: FDA-Public Use
  Company Number: 2006AL002163

PATIENT
  Age: 17 Year
  Sex: Female

DRUGS (4)
  1. METOCLOPRAMIDE [Suspect]
     Indication: HEADACHE
     Dosage: 10 MG;TID;PO
     Route: 048
     Dates: start: 20060505, end: 20060507
  2. METOCLOPRAMIDE [Suspect]
     Indication: NAUSEA
     Dosage: 10 MG;TID;PO
     Route: 048
     Dates: start: 20060505, end: 20060507
  3. DEPO-PROVERA [Concomitant]
  4. CO-DYDRAMOL [Concomitant]

REACTIONS (4)
  - DISORIENTATION [None]
  - DYSARTHRIA [None]
  - DYSTONIA [None]
  - PHARMACEUTICAL PRODUCT COMPLAINT [None]
